FAERS Safety Report 20532119 (Version 1)
Quarter: 2022Q1

REPORT INFORMATION
  Report Type: Spontaneous
  Country: US (occurrence: None)
  Receive Date: 20220301
  Receipt Date: 20220301
  Transmission Date: 20220423
  Serious: Yes (Hospitalization)
  Sender: FDA-Public Use
  Company Number: None

PATIENT
  Sex: Male
  Weight: 98.4 kg

DRUGS (3)
  1. DEXAMETHASONE [Suspect]
     Active Substance: DEXAMETHASONE
  2. LENALIDOMIDE [Suspect]
     Active Substance: LENALIDOMIDE
  3. VELCADE [Suspect]
     Active Substance: BORTEZOMIB

REACTIONS (3)
  - Chest pain [None]
  - Pulmonary mass [None]
  - Transitional cell cancer of renal pelvis and ureter metastatic [None]

NARRATIVE: CASE EVENT DATE: 20220223
